FAERS Safety Report 15728014 (Version 1)
Quarter: 2018Q4

REPORT INFORMATION
  Report Type: Spontaneous
  Country: DE (occurrence: DE)
  Receive Date: 20181217
  Receipt Date: 20181217
  Transmission Date: 20190205
  Serious: Yes (Other)
  Sender: FDA-Public Use
  Company Number: DE-CELLTRION INC.-2018DE024617

PATIENT

DRUGS (4)
  1. INFLIXIMAB PFIZER (UNKNOWN) [Suspect]
     Active Substance: INFLIXIMAB
     Indication: NEUROSARCOIDOSIS
     Dosage: 5 MG/KG, Q4W (5 MG/KG BODY WEIGHT, EVERY 4 WEEKS
     Route: 065
  2. AZATHIOPRINE. [Suspect]
     Active Substance: AZATHIOPRINE
     Indication: NEUROSARCOIDOSIS
     Dosage: 200 MG, DAILY
     Route: 065
  3. AZATHIOPRINE. [Suspect]
     Active Substance: AZATHIOPRINE
     Indication: IMMUNOSUPPRESSION
  4. INFLIXIMAB PFIZER (UNKNOWN) [Suspect]
     Active Substance: INFLIXIMAB
     Dosage: 5 MG/KG, UNK
     Route: 065

REACTIONS (7)
  - Condition aggravated [Unknown]
  - Drug ineffective for unapproved indication [Unknown]
  - Gait disturbance [Unknown]
  - Neurosarcoidosis [Unknown]
  - Ataxia [Unknown]
  - Hypoaesthesia [Unknown]
  - Drug specific antibody [Unknown]
